APPROVED DRUG PRODUCT: AMINOCAPROIC
Active Ingredient: AMINOCAPROIC ACID
Strength: 500MG
Dosage Form/Route: TABLET;ORAL
Application: A075602 | Product #001
Applicant: HIKMA PHARMACEUTICALS USA INC
Approved: May 24, 2001 | RLD: No | RS: No | Type: DISCN